FAERS Safety Report 12008086 (Version 1)
Quarter: 2016Q1

REPORT INFORMATION
  Report Type: Spontaneous
  Country: US (occurrence: US)
  Receive Date: 20160205
  Receipt Date: 20160205
  Transmission Date: 20160526
  Serious: No
  Sender: FDA-Public Use
  Company Number: US-AUROBINDO-AUR-APL-2014-12626

PATIENT
  Age: 1 Year
  Sex: Male

DRUGS (1)
  1. CEFDINIR FOR ORAL SUSPENSION 250 MG/5 ML [Suspect]
     Active Substance: CEFDINIR
     Indication: PRODUCT USED FOR UNKNOWN INDICATION
     Dosage: 3 ML, DAILY
     Route: 048
     Dates: start: 20141117

REACTIONS (1)
  - Product odour abnormal [Recovered/Resolved]

NARRATIVE: CASE EVENT DATE: 20141117
